FAERS Safety Report 22175837 (Version 1)
Quarter: 2023Q2

REPORT INFORMATION
  Report Type: Spontaneous
  Country: PH (occurrence: PH)
  Receive Date: 20230405
  Receipt Date: 20230405
  Transmission Date: 20230721
  Serious: Yes (Death)
  Sender: FDA-Public Use
  Company Number: PH-BoehringerIngelheim-2023-BI-223534

PATIENT
  Age: 54 Year
  Sex: Male
  Weight: 63 kg

DRUGS (1)
  1. ALTEPLASE [Suspect]
     Active Substance: ALTEPLASE
     Indication: Ischaemic stroke
     Route: 042
     Dates: start: 20230303, end: 20230303

REACTIONS (2)
  - Haemorrhagic transformation stroke [Fatal]
  - Pulmonary congestion [Fatal]

NARRATIVE: CASE EVENT DATE: 20230303
